FAERS Safety Report 7007404-1 (Version None)
Quarter: 2010Q3

REPORT INFORMATION
  Report Type: 
  Country: None (occurrence: None)
  Receive Date: 20100922
  Receipt Date: 20100909
  Transmission Date: 20110219
  Serious: Yes (Other)
  Sender: FDA-Public Use
  Company Number: PHHY2010JP58504

PATIENT
  Age: 53 Year
  Sex: Female

DRUGS (2)
  1. CYCLOSPORINE [Suspect]
     Indication: MYASTHENIA GRAVIS
  2. CORTICOSTEROIDS [Concomitant]
     Indication: MYASTHENIA GRAVIS
     Dosage: 5 MG/DAY
     Dates: start: 20050501

REACTIONS (8)
  - DENTAL CARE [None]
  - GINGIVAL ERYTHEMA [None]
  - GINGIVAL HYPERPLASIA [None]
  - GINGIVAL RECESSION [None]
  - GINGIVAL SWELLING [None]
  - PERIODONTAL OPERATION [None]
  - PERIODONTITIS [None]
  - TOOTH DISORDER [None]
